FAERS Safety Report 19876086 (Version 1)
Quarter: 2021Q3

REPORT INFORMATION
  Report Type: Spontaneous
  Country: US (occurrence: US)
  Receive Date: 20210923
  Receipt Date: 20210923
  Transmission Date: 20211014
  Serious: Yes (Death, Other)
  Sender: FDA-Public Use
  Company Number: US-PERRIGO-21US027923

PATIENT
  Age: 75 Year
  Sex: Female

DRUGS (1)
  1. RANITIDINE HYDROCHLORIDE (852) [Suspect]
     Active Substance: RANITIDINE HYDROCHLORIDE
     Indication: DYSPEPSIA
     Dosage: DOSE FREQUENCY: OTHER ? 2/D
     Route: 048
     Dates: start: 200401, end: 201905

REACTIONS (7)
  - Renal cancer [Fatal]
  - Lung neoplasm malignant [Fatal]
  - Gastric cancer [Fatal]
  - Bone cancer [Fatal]
  - Bladder cancer [Fatal]
  - Hepatic cancer [Fatal]
  - Brain cancer metastatic [Fatal]

NARRATIVE: CASE EVENT DATE: 20110101
